FAERS Safety Report 6864647-5 (Version None)
Quarter: 2010Q3

REPORT INFORMATION
  Report Type: 
  Country: None (occurrence: None)
  Receive Date: 20100721
  Receipt Date: 20080611
  Transmission Date: 20110219
  Serious: No
  Sender: FDA-Public Use
  Company Number: US-PFIZER INC-2008027145

PATIENT
  Sex: Female
  Weight: 88.45 kg

DRUGS (16)
  1. CHANTIX [Suspect]
     Indication: SMOKING CESSATION THERAPY
     Route: 048
     Dates: start: 20080317, end: 20080323
  2. CALCIUM [Concomitant]
  3. CYMBALTA [Concomitant]
  4. DITROPAN [Concomitant]
  5. COMBIVENT [Concomitant]
     Route: 055
  6. TRAZODONE HYDROCHLORIDE [Concomitant]
  7. CLARITIN [Concomitant]
  8. DOCUSATE SODIUM [Concomitant]
  9. SOMA [Concomitant]
  10. DURAGESIC-100 [Concomitant]
  11. ATIVAN [Concomitant]
  12. PROTONIX [Concomitant]
  13. CALCIUM CITRATE [Concomitant]
  14. GLUCOSAMINE [Concomitant]
  15. MULTI-VITAMINS [Concomitant]
  16. ALL OTHER THERAPEUTIC PRODUCTS [Concomitant]

REACTIONS (2)
  - CRYING [None]
  - NERVOUSNESS [None]
